FAERS Safety Report 23804439 (Version 1)
Quarter: 2024Q2

REPORT INFORMATION
  Report Type: Spontaneous
  Country: US (occurrence: None)
  Receive Date: 20240501
  Receipt Date: 20240501
  Transmission Date: 20240716
  Serious: Yes (Hospitalization)
  Sender: FDA-Public Use
  Company Number: None

PATIENT
  Age: 81 Year
  Sex: Female
  Weight: 61.2 kg

DRUGS (4)
  1. CARBOPLATIN [Suspect]
     Active Substance: CARBOPLATIN
     Dates: end: 20230404
  2. DURVALUMAB [Suspect]
     Active Substance: DURVALUMAB
     Dates: end: 20240220
  3. ETOPOSIDE [Suspect]
     Active Substance: ETOPOSIDE
     Dates: end: 20230406
  4. PACLITAXEL [Suspect]
     Active Substance: PACLITAXEL
     Dates: end: 20230207

REACTIONS (8)
  - Chest pain [None]
  - Nausea [None]
  - Vomiting [None]
  - Dyspnoea exertional [None]
  - Dyspepsia [None]
  - Treatment noncompliance [None]
  - Heart rate increased [None]
  - Iliac vein occlusion [None]

NARRATIVE: CASE EVENT DATE: 20240227
